FAERS Safety Report 11082350 (Version 1)
Quarter: 2015Q2

REPORT INFORMATION
  Report Type: Spontaneous
  Country: ES (occurrence: ES)
  Receive Date: 20150501
  Receipt Date: 20150501
  Transmission Date: 20150821
  Serious: Yes (Death, Hospitalization)
  Sender: FDA-Public Use
  Company Number: ES-TEVA-541385ISR

PATIENT
  Age: 68 Year
  Sex: Female

DRUGS (2)
  1. CARBOPLATIN. [Suspect]
     Active Substance: CARBOPLATIN
     Indication: OVARIAN NEOPLASM
  2. PACLITAXEL TEVA 300MG/50ML [Suspect]
     Active Substance: PACLITAXEL
     Indication: OVARIAN NEOPLASM
     Dosage: 269.33 MG (44.89ML)
     Route: 042
     Dates: start: 20150210, end: 20150210

REACTIONS (9)
  - Erythema [Recovering/Resolving]
  - Bronchospasm [Fatal]
  - Hypercapnia [Recovering/Resolving]
  - Blood gases [Recovering/Resolving]
  - Anaphylactic reaction [Fatal]
  - Respiratory failure [Fatal]
  - Respiratory acidosis [Recovering/Resolving]
  - Hypersensitivity [Fatal]
  - Pulmonary oedema [None]

NARRATIVE: CASE EVENT DATE: 20150210
